FAERS Safety Report 9302928 (Version 1)
Quarter: 2013Q2

REPORT INFORMATION
  Report Type: Spontaneous
  Country: BE (occurrence: BE)
  Receive Date: 20130522
  Receipt Date: 20130522
  Transmission Date: 20140414
  Serious: Yes (Other)
  Sender: FDA-Public Use
  Company Number: PHHY2013BE047339

PATIENT
  Age: 89 Year
  Sex: Female

DRUGS (6)
  1. GLIVEC [Suspect]
     Indication: GASTROINTESTINAL STROMAL TUMOUR
     Dosage: 800 MG, DAILY
     Route: 048
  2. GLIVEC [Suspect]
     Dosage: 400 MG, DAILY
     Route: 048
     Dates: start: 200805, end: 201302
  3. GLIVEC [Suspect]
     Dosage: 400 MG, BID
     Route: 048
     Dates: start: 201302
  4. LIPITOR [Concomitant]
     Dosage: 20 MG, DAILY
  5. BETAHISTINE [Concomitant]
     Dosage: UNK UKN, UNK
  6. LORAZEPAM [Concomitant]
     Dosage: OCCASIONAL

REACTIONS (7)
  - Pancreatic neoplasm [Unknown]
  - Pleural effusion [Not Recovered/Not Resolved]
  - Gastrointestinal stromal tumour [Unknown]
  - Malignant neoplasm progression [Unknown]
  - Metastasis [Unknown]
  - Ascites [Unknown]
  - Dyspnoea [Unknown]
